FAERS Safety Report 8856092 (Version 1)
Quarter: 2012Q4

REPORT INFORMATION
  Report Type: Spontaneous
  Country: US (occurrence: None)
  Receive Date: 20121022
  Receipt Date: 20121022
  Transmission Date: 20130627
  Serious: Yes (Life-Threatening)
  Sender: FDA-Public Use
  Company Number: None

PATIENT
  Age: 74 Year
  Sex: Female
  Weight: 97.98 kg

DRUGS (1)
  1. LYRICA [Suspect]
     Route: 048
     Dates: start: 20121001, end: 20121010

REACTIONS (8)
  - Dizziness [None]
  - Depression [None]
  - Disturbance in attention [None]
  - Decreased interest [None]
  - Somnolence [None]
  - Tremor [None]
  - Oedema peripheral [None]
  - Renal pain [None]
